FAERS Safety Report 17177990 (Version 2)
Quarter: 2021Q3

REPORT INFORMATION
  Report Type: Not Available
  Country: None (occurrence: None)
  Receive Date: 20191219
  Receipt Date: 20210820
  Transmission Date: 20211014
  Serious: No
  Sender: FDA-Public Use
  Company Number: N/A

PATIENT
  Age: 56 Year
  Sex: Female

DRUGS (1)
  1. THERATEARS LUBRICANT EYE [Suspect]
     Active Substance: CARBOXYMETHYLCELLULOSE SODIUM

REACTIONS (3)
  - Eye irritation [Unknown]
  - Hordeolum [Unknown]
  - Eye pain [Unknown]
